FAERS Safety Report 5669234-2 (Version None)
Quarter: 2008Q1

REPORT INFORMATION
  Report Type: 
  Country: None (occurrence: None)
  Receive Date: 20080317
  Receipt Date: 20080306
  Transmission Date: 20080703
  Serious: Yes (Other)
  Sender: FDA-Public Use
  Company Number: FR-JNJFOC-20080301881

PATIENT
  Age: 30 Year
  Sex: Male

DRUGS (1)
  1. REMICADE [Suspect]
     Indication: DRUG USE FOR UNKNOWN INDICATION
     Dosage: 15 INFUSIONS
     Route: 042

REACTIONS (3)
  - BLINDNESS TRANSIENT [None]
  - INFUSION RELATED REACTION [None]
  - VISION BLURRED [None]
